FAERS Safety Report 8932414 (Version 5)
Quarter: 2013Q4

REPORT INFORMATION
  Report Type: Report from Study
  Country: JP (occurrence: JP)
  Receive Date: 20121128
  Receipt Date: 20131118
  Transmission Date: 20140711
  Serious: Yes (Hospitalization, Other)
  Sender: FDA-Public Use
  Company Number: JP-VERTEX PHARMACEUTICAL INC.-2012-025058

PATIENT
  Age: 44 Year
  Sex: Male

DRUGS (10)
  1. VX-950 (TELAPREVIR) [Suspect]
     Indication: CHRONIC HEPATITIS C
     Dosage: 2250 MG, QD
     Route: 048
     Dates: start: 20120823, end: 20121023
  2. RIBAVIRIN [Suspect]
     Indication: CHRONIC HEPATITIS C
     Dosage: 800 MG, QD
     Route: 048
     Dates: start: 20120823, end: 20120913
  3. RIBAVIRIN [Suspect]
     Dosage: 600 MG, QD
     Route: 048
     Dates: start: 20120914, end: 20121023
  4. RIBAVIRIN [Suspect]
     Dosage: 600 MG, QD
     Route: 048
     Dates: start: 20121031, end: 20121108
  5. RIBAVIRIN [Suspect]
     Dosage: 800 MG, QD
     Route: 048
     Dates: start: 20121109, end: 20130214
  6. PEGINTRON [Suspect]
     Indication: CHRONIC HEPATITIS C
     Dosage: 1.35 ?G/KG, QW
     Route: 058
     Dates: start: 20120823, end: 20121023
  7. PEGINTRON [Suspect]
     Dosage: 1.13 ?G/KG, QW
     Route: 058
     Dates: start: 20121031, end: 20121108
  8. PEGINTRON [Suspect]
     Dosage: 1.27 ?G/KG, QW
     Route: 058
     Dates: start: 20121109, end: 20121212
  9. PEGINTRON [Suspect]
     Dosage: 0.99 ?G/KG, QW
     Route: 058
     Dates: start: 20121213, end: 20121219
  10. PEGINTRON [Suspect]
     Dosage: 1.27 ?G/KG, QW
     Route: 058
     Dates: start: 20121220, end: 20130208

REACTIONS (2)
  - Pancreatitis acute [Recovered/Resolved]
  - Neutrophil count decreased [Recovered/Resolved]
